FAERS Safety Report 5308565-2 (Version None)
Quarter: 2007Q2

REPORT INFORMATION
  Report Type: 
  Country: None (occurrence: None)
  Receive Date: 20070420
  Receipt Date: 20070404
  Transmission Date: 20071010
  Serious: Yes (Hospitalization)
  Sender: FDA-Public Use
  Company Number: 8023268

PATIENT
  Sex: Male
  Weight: 79 kg

DRUGS (3)
  1. KEPPRA [Suspect]
     Indication: EPILEPSY
     Dosage: 250 MG/D PO
     Route: 048
     Dates: start: 20060815, end: 20061214
  2. KEPPRA [Suspect]
     Indication: EPILEPSY
     Dosage: 250 MG 1/D PO
     Route: 048
     Dates: start: 20061218, end: 20070102
  3. CONCOR /00802602/ [Concomitant]

REACTIONS (1)
  - HYPERTENSIVE CRISIS [None]
